FAERS Safety Report 7346544-4 (Version None)
Quarter: 2011Q1

REPORT INFORMATION
  Report Type: 
  Country: None (occurrence: None)
  Receive Date: 20110311
  Receipt Date: 20110301
  Transmission Date: 20110831
  Serious: Yes (Other)
  Sender: FDA-Public Use
  Company Number: US-JNJFOC-20110301356

PATIENT
  Sex: Female
  Weight: 79.38 kg

DRUGS (11)
  1. TENORMIN [Concomitant]
     Indication: PALPITATIONS
     Dosage: 50 MG HALF DAILY
     Route: 048
  2. PEPCID [Concomitant]
     Indication: GASTROINTESTINAL DISORDER THERAPY
     Route: 048
  3. DURAGESIC-50 [Suspect]
     Dosage: NDC: 50458-0092-05
     Route: 062
  4. DURAGESIC-50 [Suspect]
     Route: 062
  5. DURAGESIC-50 [Suspect]
     Route: 062
  6. XANAX [Concomitant]
     Indication: SLEEP DISORDER THERAPY
     Route: 048
  7. PREMARIN [Concomitant]
     Indication: HORMONE REPLACEMENT THERAPY
     Route: 048
  8. TRAMADOL [Suspect]
     Indication: BREAKTHROUGH PAIN
     Dosage: ONCE EVERY 8 HOURS AS NEEDED
     Route: 048
  9. DURAGESIC-50 [Suspect]
     Indication: PAIN
     Route: 062
  10. FENTANYL-100 [Suspect]
     Indication: PAIN
     Route: 062
  11. DARVOCET [Concomitant]
     Indication: BREAKTHROUGH PAIN
     Dosage: AS NEEDED
     Route: 048

REACTIONS (8)
  - MALAISE [None]
  - WRONG TECHNIQUE IN DRUG USAGE PROCESS [None]
  - THERAPEUTIC RESPONSE DECREASED [None]
  - JOINT DESTRUCTION [None]
  - CYSTITIS [None]
  - VOMITING [None]
  - BRONCHITIS [None]
  - DRUG TOLERANCE [None]
